FAERS Safety Report 6177197-9 (Version None)
Quarter: 2009Q2

REPORT INFORMATION
  Report Type: 
  Country: None (occurrence: None)
  Receive Date: 20090504
  Receipt Date: 20090427
  Transmission Date: 20091009
  Serious: Yes (Other)
  Sender: FDA-Public Use
  Company Number: ES-B.I. PHARMACEUTICALS,INC./RIDGEFIELD-2009-ES-00073ES

PATIENT
  Age: 74 Year
  Sex: Male

DRUGS (2)
  1. ATROVENT [Suspect]
     Indication: BRONCHIECTASIS
     Route: 055
     Dates: start: 20081201, end: 20081201
  2. VENTOLIN [Suspect]
     Indication: BRONCHIECTASIS
     Dosage: 200MG
     Route: 055
     Dates: start: 20081201, end: 20081201

REACTIONS (3)
  - ARRHYTHMIA [None]
  - CARDIAC FIBRILLATION [None]
  - TACHYCARDIA [None]
